FAERS Safety Report 7286121-7 (Version None)
Quarter: 2011Q1

REPORT INFORMATION
  Report Type: 
  Country: None (occurrence: None)
  Receive Date: 20110210
  Receipt Date: 20110128
  Transmission Date: 20110831
  Serious: Yes (Other)
  Sender: FDA-Public Use
  Company Number: NO-ELI_LILLY_AND_COMPANY-NO201102000456

PATIENT
  Sex: Male

DRUGS (5)
  1. VALLERGAN [Concomitant]
     Indication: INSOMNIA
     Dosage: 30 MG, DAILY (1/D)
     Route: 048
     Dates: start: 20101216
  2. ZYPREXA [Suspect]
     Indication: DEPRESSION
     Dosage: 10 MG, DAILY (1/D)
     Route: 048
     Dates: start: 20101231, end: 20110109
  3. ABILIFY [Concomitant]
     Indication: DEPRESSION
     Dosage: 10 MG, DAILY (1/D)
     Route: 048
     Dates: start: 20101214, end: 20110109
  4. ZYPREXA [Suspect]
     Dosage: 5 MG, DAILY (1/D)
     Route: 048
     Dates: start: 20110110, end: 20110111
  5. ABILIFY [Concomitant]
     Dosage: 15 MG, DAILY (1/D)
     Route: 048
     Dates: start: 20110110

REACTIONS (2)
  - OFF LABEL USE [None]
  - PULMONARY EMBOLISM [None]
